FAERS Safety Report 6055318-6 (Version None)
Quarter: 2009Q1

REPORT INFORMATION
  Report Type: 
  Country: None (occurrence: None)
  Receive Date: 20090128
  Receipt Date: 20090119
  Transmission Date: 20090719
  Serious: Yes (Hospitalization)
  Sender: FDA-Public Use
  Company Number: JP-ELI_LILLY_AND_COMPANY-JP200810006037

PATIENT
  Sex: Male
  Weight: 69.7 kg

DRUGS (8)
  1. PEMETREXED [Suspect]
     Indication: PLEURAL MESOTHELIOMA MALIGNANT
     Dosage: 940 MG, OTHER
     Route: 042
     Dates: start: 20070913, end: 20080201
  2. CISPLATIN [Suspect]
     Indication: PLEURAL MESOTHELIOMA MALIGNANT
     Dosage: 140 MG, OTHER
     Route: 042
     Dates: start: 20070913, end: 20080201
  3. PANVITAN [Concomitant]
     Dosage: 1 G, DAILY (1/D)
     Route: 048
     Dates: start: 20070905, end: 20080201
  4. CYANOCOBALAMIN [Concomitant]
     Dosage: 1 MG, OTHER
     Route: 030
     Dates: start: 20070906, end: 20071127
  5. LOXONIN [Concomitant]
     Indication: CANCER PAIN
     Dosage: 120 MG, DAILY (1/D)
     Route: 048
     Dates: end: 20071002
  6. MUCOSTA [Concomitant]
     Indication: PROPHYLAXIS
     Dosage: 200 MG, DAILY (1/D)
     Route: 048
     Dates: end: 20071002
  7. SPIRIVA [Concomitant]
     Indication: CHRONIC OBSTRUCTIVE PULMONARY DISEASE
     Dosage: 18 UG, DAILY (1/D)
     Route: 055
     Dates: end: 20071002
  8. RHYTHMY [Concomitant]
     Indication: PROPHYLAXIS
     Dosage: 2 MG, DAILY (1/D)
     Route: 048
     Dates: start: 20070915, end: 20071023

REACTIONS (4)
  - BACTERIAL INFECTION [None]
  - HAEMOTHORAX [None]
  - PLEURISY [None]
  - PNEUMONIA [None]
